FAERS Safety Report 4691912-2 (Version None)
Quarter: 2005Q2

REPORT INFORMATION
  Report Type: 
  Country: None (occurrence: None)
  Receive Date: 20050614
  Receipt Date: 20050602
  Transmission Date: 20051028
  Serious: Yes (Other)
  Sender: FDA-Public Use
  Company Number: 2005085552

PATIENT
  Age: 42 Year
  Sex: Female
  Weight: 127.0072 kg

DRUGS (3)
  1. BEXTRA [Suspect]
     Indication: RHEUMATOID ARTHRITIS
     Dosage: 40 MG (20 MG , 2 IN1 D), ORAL
     Route: 048
  2. COZAAR [Concomitant]
  3. HYDROCHLOROTHIAZIDE [Concomitant]

REACTIONS (3)
  - BEDRIDDEN [None]
  - DRUG INEFFECTIVE [None]
  - THYROID OPERATION [None]
